FAERS Safety Report 24576408 (Version 1)
Quarter: 2024Q4

REPORT INFORMATION
  Report Type: Spontaneous
  Country: US (occurrence: US)
  Receive Date: 20241104
  Receipt Date: 20241104
  Transmission Date: 20250115
  Serious: Yes (Hospitalization, Other)
  Sender: ASCENT PHARMACEUTICALS INC
  Company Number: US-ASCENT-2024ASSPO00056

PATIENT
  Age: 61 Year
  Sex: Male
  Weight: 82 kg

DRUGS (7)
  1. OMEGA-3-ACID ETHYL ESTER [Suspect]
     Active Substance: OMEGA-3-ACID ETHYL ESTERS
     Indication: Hypercholesterolaemia
     Route: 048
     Dates: start: 2020, end: 20241011
  2. CALAN [Concomitant]
     Active Substance: VERAPAMIL HYDROCHLORIDE
     Indication: Mitral valve prolapse
     Route: 065
  3. ALFUZOSIN [Concomitant]
     Active Substance: ALFUZOSIN
     Indication: Product used for unknown indication
     Route: 065
  4. METFORMIN [Concomitant]
     Active Substance: METFORMIN HYDROCHLORIDE
     Indication: Product used for unknown indication
     Route: 065
  5. MAGNESIUM [Concomitant]
     Active Substance: MAGNESIUM
     Indication: Product used for unknown indication
     Route: 065
  6. POTASSIUM [Concomitant]
     Active Substance: POTASSIUM
     Indication: Multi-vitamin deficiency
     Route: 065
  7. REPATHA [Concomitant]
     Active Substance: EVOLOCUMAB
     Indication: Hypercholesterolaemia
     Dosage: FOR THE LAST 2 YEARS
     Route: 065

REACTIONS (5)
  - Cardiac arrest [Recovered/Resolved]
  - Syncope [Recovered/Resolved]
  - Cardiac flutter [Recovered/Resolved]
  - Palpitations [Recovered/Resolved]
  - Dizziness [Recovered/Resolved]

NARRATIVE: CASE EVENT DATE: 20200101
